FAERS Safety Report 19969898 (Version 1)
Quarter: 2021Q4

REPORT INFORMATION
  Report Type: Spontaneous
  Country: PA (occurrence: PA)
  Receive Date: 20211019
  Receipt Date: 20211019
  Transmission Date: 20220303
  Serious: Yes (Hospitalization)
  Sender: FDA-Public Use
  Company Number: PA-ROCHE-2929616

PATIENT
  Age: 58 Year
  Sex: Male

DRUGS (2)
  1. ALECENSA [Suspect]
     Active Substance: ALECTINIB HYDROCHLORIDE
     Indication: Non-small cell lung cancer
     Route: 048
     Dates: start: 20210812
  2. METHYLPREDNISOLONE [Concomitant]
     Active Substance: METHYLPREDNISOLONE

REACTIONS (6)
  - Pneumonitis [Recovering/Resolving]
  - Hypoxia [Recovering/Resolving]
  - Traumatic lung injury [Unknown]
  - Lung disorder [Unknown]
  - Dyspnoea [Unknown]
  - Pleural effusion [Unknown]

NARRATIVE: CASE EVENT DATE: 20210928
